FAERS Safety Report 14419255 (Version 2)
Quarter: 2018Q1

REPORT INFORMATION
  Report Type: Spontaneous
  Country: FR (occurrence: FR)
  Receive Date: 20180122
  Receipt Date: 20180215
  Transmission Date: 20180509
  Serious: Yes (Death)
  Sender: FDA-Public Use
  Company Number: FR-CHIESI USA INC.-FR-2018CHI000012

PATIENT
  Weight: .6 kg

DRUGS (1)
  1. CUROSURF [Suspect]
     Active Substance: PORACTANT ALFA
     Indication: ACUTE RESPIRATORY DISTRESS SYNDROME
     Dosage: 200 MG/KG, UNK
     Route: 007
     Dates: start: 20180110

REACTIONS (2)
  - Pneumothorax [Fatal]
  - Cardiac arrest [Fatal]

NARRATIVE: CASE EVENT DATE: 20180110
